FAERS Safety Report 20695367 (Version 1)
Quarter: 2022Q2

REPORT INFORMATION
  Report Type: Spontaneous
  Country: US (occurrence: US)
  Receive Date: 20220411
  Receipt Date: 20220411
  Transmission Date: 20220721
  Serious: No
  Sender: FDA-Public Use
  Company Number: US-PFIZER INC-202200322830

PATIENT
  Age: 13 Month
  Sex: Male
  Weight: 6.8 kg

DRUGS (1)
  1. SOMATROPIN [Suspect]
     Active Substance: SOMATROPIN
     Indication: Prader-Willi syndrome
     Dosage: UNK
     Dates: start: 20220207, end: 20220217

REACTIONS (2)
  - Wrong technique in device usage process [Unknown]
  - Injection site rash [Unknown]

NARRATIVE: CASE EVENT DATE: 20220201
